FAERS Safety Report 7070602-5 (Version None)
Quarter: 2010Q4

REPORT INFORMATION
  Report Type: 
  Country: None (occurrence: None)
  Receive Date: 20101029
  Receipt Date: 20101014
  Transmission Date: 20110411
  Serious: Yes (Other)
  Sender: FDA-Public Use
  Company Number: GB-PFIZER INC-2010130521

PATIENT
  Age: 33 Year
  Sex: Male

DRUGS (1)
  1. LYRICA [Suspect]
     Dosage: 50MG 4 X DAILY, 100MG AT NIGHT

REACTIONS (1)
  - DRUG ABUSE [None]
